FAERS Safety Report 7945587-7 (Version None)
Quarter: 2011Q4

REPORT INFORMATION
  Report Type: 
  Country: None (occurrence: None)
  Receive Date: 20111122
  Receipt Date: 20111116
  Transmission Date: 20120403
  Serious: Yes (Disabling)
  Sender: FDA-Public Use
  Company Number: 2011SP045410

PATIENT
  Age: 68 Year
  Sex: Female

DRUGS (5)
  1. PREDNISOLONE [Concomitant]
  2. TEMOZOLOMIDE [Concomitant]
  3. ZOFRAN [Concomitant]
  4. BACTRIM [Concomitant]
  5. TEMODAL [Suspect]
     Indication: GLIOBLASTOMA
     Dosage: 150 MG/M2;PO
     Route: 048
     Dates: start: 20101216, end: 20110808

REACTIONS (1)
  - HEARING IMPAIRED [None]
